FAERS Safety Report 23687991 (Version 1)
Quarter: 2024Q1

REPORT INFORMATION
  Report Type: Report from Study
  Country: US (occurrence: US)
  Receive Date: 20240329
  Receipt Date: 20240329
  Transmission Date: 20240410
  Serious: Yes (Other)
  Sender: FDA-Public Use
  Company Number: US-JNJFOC-20240360007

PATIENT
  Sex: Female

DRUGS (1)
  1. SPRAVATO [Suspect]
     Active Substance: ESKETAMINE
     Indication: Depression
     Dosage: ^84 MG, 59 TOTAL DOSES^
     Dates: start: 20221102, end: 20240117

REACTIONS (3)
  - Limb injury [Unknown]
  - Fall [Unknown]
  - Adverse event [Unknown]
